FAERS Safety Report 19997834 (Version 3)
Quarter: 2022Q1

REPORT INFORMATION
  Report Type: Spontaneous
  Country: None (occurrence: PT)
  Receive Date: 20211026
  Receipt Date: 20220114
  Transmission Date: 20220423
  Serious: Yes (Other)
  Sender: FDA-Public Use
  Company Number: PT-AKCEA THERAPEUTICS, INC.-2021IS001772

PATIENT
  Age: 40 Year
  Sex: Male

DRUGS (5)
  1. TEGSEDI [Suspect]
     Active Substance: INOTERSEN SODIUM
     Indication: Hereditary neuropathic amyloidosis
     Route: 058
     Dates: start: 20210318, end: 20210915
  2. DEVICE [Suspect]
     Active Substance: DEVICE
  3. TAFAMIDIS [Concomitant]
     Active Substance: TAFAMIDIS
     Route: 065
     Dates: start: 201711
  4. OMEPRAZOLE [Concomitant]
     Active Substance: OMEPRAZOLE
     Route: 065
  5. CALCITAB D [Concomitant]
     Route: 065

REACTIONS (24)
  - Proteinuria [Unknown]
  - Glomerulonephritis chronic [Unknown]
  - Atrioventricular block first degree [Unknown]
  - Fatigue [Unknown]
  - Decreased appetite [Unknown]
  - Hypoaesthesia [Unknown]
  - Urinary incontinence [Unknown]
  - Cardiac disorder [Unknown]
  - Diarrhoea [Unknown]
  - Chromaturia [Unknown]
  - Specific gravity urine abnormal [Unknown]
  - Urinary sediment present [Unknown]
  - Albuminuria [Unknown]
  - Urine albumin/creatinine ratio abnormal [Unknown]
  - Red blood cell count decreased [Unknown]
  - Haemoglobin decreased [Unknown]
  - Haematocrit decreased [Unknown]
  - Plateletcrit abnormal [Unknown]
  - Mean platelet volume abnormal [Unknown]
  - Platelet distribution width abnormal [Unknown]
  - Blood fibrinogen increased [Unknown]
  - Renal amyloidosis [Unknown]
  - Glomerulosclerosis [Unknown]
  - Creatinine urine abnormal [Unknown]

NARRATIVE: CASE EVENT DATE: 20210914
